FAERS Safety Report 22151370 (Version 1)
Quarter: 2023Q1

REPORT INFORMATION
  Report Type: Spontaneous
  Country: US (occurrence: None)
  Receive Date: 20230328
  Receipt Date: 20230328
  Transmission Date: 20230418
  Serious: Yes (Other)
  Sender: FDA-Public Use
  Company Number: None

PATIENT
  Age: 58 Year
  Sex: Male
  Weight: 72 kg

DRUGS (1)
  1. MESALAMINE RECTAL [Suspect]
     Active Substance: MESALAMINE
     Indication: Proctitis ulcerative
     Dosage: OTHER QUANTITY : 30 SUPPOSITORY(IES);?FREQUENCY : AT BEDTIME;?OTHER ROUTE : SUPPOSITORIES;?
     Route: 050
     Dates: start: 20230101, end: 20230327

REACTIONS (4)
  - Colitis ulcerative [None]
  - Product substitution issue [None]
  - Haemorrhage [None]
  - Secretion discharge [None]

NARRATIVE: CASE EVENT DATE: 20230327
